FAERS Safety Report 23518394 (Version 1)
Quarter: 2024Q1

REPORT INFORMATION
  Report Type: Spontaneous
  Country: JP (occurrence: JP)
  Receive Date: 20240213
  Receipt Date: 20240213
  Transmission Date: 20240409
  Serious: Yes (Hospitalization)
  Sender: FDA-Public Use
  Company Number: JP-CARA THERAPEUTICS, INC.-2024-00046-JP

PATIENT
  Age: 61 Year
  Sex: Male

DRUGS (18)
  1. KORSUVA [Suspect]
     Active Substance: DIFELIKEFALIN ACETATE
     Indication: Pruritus
     Dosage: 25 MCG
     Route: 042
     Dates: start: 20240105, end: 20240105
  2. KORSUVA [Suspect]
     Active Substance: DIFELIKEFALIN ACETATE
     Dosage: 25 MCG
     Route: 042
     Dates: start: 20240108, end: 20240108
  3. KORSUVA [Suspect]
     Active Substance: DIFELIKEFALIN ACETATE
     Dosage: 25 MCG
     Route: 042
     Dates: start: 20240110, end: 20240110
  4. KORSUVA [Suspect]
     Active Substance: DIFELIKEFALIN ACETATE
     Dosage: 17.5 MCG
     Route: 042
     Dates: start: 20240122, end: 20240122
  5. LACTULOSE [Concomitant]
     Active Substance: LACTULOSE
  6. CALCIUM CARBONATE [Concomitant]
     Active Substance: CALCIUM CARBONATE
  7. URSO 1A PHARMA [Concomitant]
  8. NICORANDIL [Concomitant]
     Active Substance: NICORANDIL
  9. CILOSTAZOL [Concomitant]
     Active Substance: CILOSTAZOL
  10. BIO-THREE [Concomitant]
     Active Substance: HERBALS
  11. TRAMADOL [Concomitant]
     Active Substance: TRAMADOL\TRAMADOL HYDROCHLORIDE
  12. AMINO ACIDS, SOURCE UNSPECIFIED [Concomitant]
     Active Substance: AMINO ACIDS, SOURCE UNSPECIFIED
  13. NIFEDIPINE [Concomitant]
     Active Substance: NIFEDIPINE
  14. VONOPRAZAN FUMARATE [Concomitant]
     Active Substance: VONOPRAZAN FUMARATE
  15. EVOCALCET [Concomitant]
     Active Substance: EVOCALCET
  16. AMINO ACIDS, SOURCE UNSPECIFIED [Concomitant]
     Active Substance: AMINO ACIDS, SOURCE UNSPECIFIED
  17. MAXACALCITOL [Concomitant]
     Active Substance: MAXACALCITOL
  18. HISHIPHAGEN C [CYSTEINE HYDROCHLORIDE;GLYCINE;GLYCYRRHIZIC ACID, AMMON [Concomitant]

REACTIONS (4)
  - Epilepsy [Recovered/Resolved]
  - Melaena [Unknown]
  - Haematemesis [Unknown]
  - Amnesia [Recovered/Resolved]

NARRATIVE: CASE EVENT DATE: 20240110
